FAERS Safety Report 5519905-3 (Version None)
Quarter: 2007Q4

REPORT INFORMATION
  Report Type: 
  Country: None (occurrence: None)
  Receive Date: 20071116
  Receipt Date: 20071018
  Transmission Date: 20080405
  Serious: No
  Sender: FDA-Public Use
  Company Number: A0688495A

PATIENT
  Age: 64 Year
  Sex: Female

DRUGS (6)
  1. COREG CR [Suspect]
     Dosage: 80MG PER DAY
     Route: 048
     Dates: start: 20061023
  2. LISINOPRIL [Concomitant]
     Dates: end: 20071016
  3. PRAVASTATIN [Concomitant]
  4. QUINDAL [Concomitant]
  5. GLUCOTROL [Concomitant]
  6. FUROSEMIDE [Concomitant]

REACTIONS (1)
  - ALOPECIA [None]
